FAERS Safety Report 16084363 (Version 1)
Quarter: 2019Q1

REPORT INFORMATION
  Report Type: Spontaneous
  Country: US (occurrence: US)
  Receive Date: 20190318
  Receipt Date: 20190318
  Transmission Date: 20190418
  Serious: Yes (Hospitalization)
  Sender: FDA-Public Use
  Company Number: US-MYLANLABS-2019M1023834

PATIENT
  Age: 69 Year
  Sex: Male

DRUGS (1)
  1. ASCORBIC ACID. [Suspect]
     Active Substance: ASCORBIC ACID
     Indication: VITAMIN SUPPLEMENTATION
     Dosage: TAKING FOR OVER THE PAST 2 YEARS
     Route: 065

REACTIONS (3)
  - Acute kidney injury [Recovering/Resolving]
  - Crystal nephropathy [Recovered/Resolved]
  - Renal tubular atrophy [Recovered/Resolved]
